FAERS Safety Report 5645175-1 (Version None)
Quarter: 2008Q1

REPORT INFORMATION
  Report Type: 
  Country: None (occurrence: None)
  Receive Date: 20080229
  Receipt Date: 20080222
  Transmission Date: 20080703
  Serious: Yes (Other)
  Sender: FDA-Public Use
  Company Number: US-JNJFOC-20080205859

PATIENT
  Age: 60 Year
  Sex: Male
  Weight: 54.43 kg

DRUGS (1)
  1. HALOPERIDOL DECANOATE [Suspect]
     Indication: SCHIZOPHRENIA
     Route: 030

REACTIONS (4)
  - ABNORMAL BEHAVIOUR [None]
  - COLON CANCER [None]
  - GENERAL PHYSICAL CONDITION ABNORMAL [None]
  - INSOMNIA [None]
